FAERS Safety Report 7940662-5 (Version None)
Quarter: 2011Q4

REPORT INFORMATION
  Report Type: 
  Country: None (occurrence: None)
  Receive Date: 20111114
  Receipt Date: 20101209
  Transmission Date: 20120403
  Serious: Yes (Hospitalization)
  Sender: FDA-Public Use
  Company Number: 2010S1001772

PATIENT
  Age: 31 Year
  Sex: Male

DRUGS (7)
  1. CISPLATIN [Concomitant]
  2. GEMCITABINE [Concomitant]
  3. LINEZOLID [Concomitant]
  4. CUBICIN [Suspect]
     Indication: ABDOMINAL ABSCESS
  5. PIPERACILLIN AND TAZOBACTAM [Concomitant]
  6. CASPOFUNGIN ACETATE [Concomitant]
  7. VANCOMYCIN [Concomitant]

REACTIONS (1)
  - GASTROINTESTINAL HAEMORRHAGE [None]
